FAERS Safety Report 7964795-2 (Version None)
Quarter: 2011Q4

REPORT INFORMATION
  Report Type: 
  Country: None (occurrence: None)
  Receive Date: 20111206
  Receipt Date: 20111206
  Transmission Date: 20120403
  Serious: Yes (Hospitalization)
  Sender: FDA-Public Use
  Company Number: None

PATIENT
  Age: 69 Year
  Sex: Male

DRUGS (1)
  1. ZYTIGA [Suspect]
     Dosage: 1000MG DAILY PO
     Route: 048
     Dates: start: 20110708, end: 20111201

REACTIONS (2)
  - URINARY TRACT INFECTION [None]
  - DEVICE RELATED INFECTION [None]
